FAERS Safety Report 8610884-9 (Version None)
Quarter: 2012Q3

REPORT INFORMATION
  Report Type: 
  Country: None (occurrence: None)
  Receive Date: 20120423
  Receipt Date: 20100628
  Transmission Date: 20120928
  Serious: Yes (Hospitalization)
  Sender: FDA-Public Use
  Company Number: PHHY2010US42360

PATIENT
  Age: 76 Year
  Sex: Female

DRUGS (1)
  1. FEMARA [Suspect]
     Dosage: 2.5 MG DAILY, ORAL
     Route: 048
     Dates: start: 20100105

REACTIONS (1)
  - CEREBROVASCULAR ACCIDENT [None]
